FAERS Safety Report 11707042 (Version 2)
Quarter: 2015Q4

REPORT INFORMATION
  Report Type: Spontaneous
  Country: US (occurrence: US)
  Receive Date: 20151104
  Receipt Date: 20151120
  Transmission Date: 20160304
  Serious: No
  Sender: FDA-Public Use
  Company Number: US-ELI_LILLY_AND_COMPANY-US201101003832

PATIENT
  Age: 68 Year
  Sex: Female

DRUGS (4)
  1. FORTEO [Suspect]
     Active Substance: TERIPARATIDE
     Dosage: 20 UG, QD
  2. FORTEO [Suspect]
     Active Substance: TERIPARATIDE
     Indication: OSTEOPOROSIS
     Dosage: 20 UG, QD
     Dates: start: 201104
  3. FORTEO [Suspect]
     Active Substance: TERIPARATIDE
     Dosage: 20 UG, QD
  4. FORTEO [Suspect]
     Active Substance: TERIPARATIDE
     Dosage: 20 UG, QD

REACTIONS (14)
  - Paraesthesia [Recovering/Resolving]
  - Malaise [Recovering/Resolving]
  - Dizziness [Recovering/Resolving]
  - Asthenia [Recovering/Resolving]
  - Movement disorder [Recovering/Resolving]
  - Oropharyngeal discomfort [Not Recovered/Not Resolved]
  - Chills [Recovering/Resolving]
  - Upper respiratory tract infection [Recovering/Resolving]
  - Fatigue [Unknown]
  - Injection site discomfort [Unknown]
  - Sinus disorder [Not Recovered/Not Resolved]
  - Adverse reaction [Unknown]
  - Feeling hot [Recovering/Resolving]
  - Chest pain [Recovering/Resolving]

NARRATIVE: CASE EVENT DATE: 20110114
